FAERS Safety Report 5562697-2 (Version None)
Quarter: 2007Q4

REPORT INFORMATION
  Report Type: 
  Country: None (occurrence: None)
  Receive Date: 20071211
  Receipt Date: 20071211
  Transmission Date: 20080405
  Serious: Yes (Death, Life-Threatening, Hospitalization, Disabling, Other)
  Sender: FDA-Public Use
  Company Number: None

PATIENT
  Age: 80 Year
  Sex: Male
  Weight: 68.0396 kg

DRUGS (1)
  1. ETHYOL [Suspect]
     Indication: DRUG THERAPY
     Dosage: DAILY  SQ
     Route: 058
     Dates: start: 20070821, end: 20070822

REACTIONS (7)
  - DIZZINESS [None]
  - FLUSHING [None]
  - HYPERTENSION [None]
  - NAUSEA [None]
  - REFUSAL OF TREATMENT BY RELATIVE [None]
  - VENTRICULAR EXTRASYSTOLES [None]
  - VOMITING [None]
